FAERS Safety Report 21488737 (Version 1)
Quarter: 2022Q4

REPORT INFORMATION
  Report Type: Report from Study
  Country: US (occurrence: US)
  Receive Date: 20221021
  Receipt Date: 20221021
  Transmission Date: 20230113
  Serious: Yes (Other)
  Sender: FDA-Public Use
  Company Number: US-ABBVIE-4168590

PATIENT
  Sex: Female

DRUGS (1)
  1. IMBRUVICA [Suspect]
     Active Substance: IBRUTINIB
     Indication: Waldenstrom^s macroglobulinaemia
     Route: 048
     Dates: start: 201911

REACTIONS (4)
  - Cataract [Recovering/Resolving]
  - Decreased appetite [Recovering/Resolving]
  - Post procedural complication [Recovering/Resolving]
  - Fatigue [Recovering/Resolving]
